FAERS Safety Report 4680196-7 (Version None)
Quarter: 2005Q2

REPORT INFORMATION
  Report Type: 
  Country: None (occurrence: None)
  Receive Date: 20050531
  Receipt Date: 20041216
  Transmission Date: 20051028
  Serious: Yes (Hospitalization)
  Sender: FDA-Public Use
  Company Number: FR-2004-036744

PATIENT
  Age: 66 Year
  Sex: Male

DRUGS (3)
  1. QUADRAMET [Suspect]
     Indication: METASTASES TO BONE
     Dates: start: 20041013
  2. ZOMETA [Suspect]
     Indication: METASTASES TO BONE
     Dates: start: 20040914
  3. HORMONES AND RELATED AGENTS [Concomitant]

REACTIONS (3)
  - ANOREXIA [None]
  - NAUSEA [None]
  - VOMITING [None]
